FAERS Safety Report 7426533 (Version 4)
Quarter: 2013Q1

REPORT INFORMATION
  Report Type: Spontaneous
  Country: NL (occurrence: NL)
  Receive Date: 20100621
  Receipt Date: 20130115
  Transmission Date: 20140127
  Serious: Yes (Hospitalization)
  Sender: FDA-Public Use
  Company Number: NL-ALEXION-A201000689

PATIENT
  Age: 18 Year
  Sex: Female

DRUGS (8)
  1. SOLIRIS 300MG [Suspect]
     Indication: HAEMOLYTIC URAEMIC SYNDROME
     Dosage: 900 MG, UNK
     Route: 042
     Dates: start: 20090121, end: 20090215
  2. SOLIRIS 300MG [Suspect]
     Dosage: 1200 MG, UNK
     Route: 042
     Dates: start: 20090228
  3. MYCOPHENOLATE MOFETIL [Suspect]
     Indication: RENAL TRANSPLANT
     Dosage: 500 MG, TID
     Route: 048
     Dates: start: 2008
  4. PREDNISOLON                        /00016201/ [Suspect]
     Indication: RENAL TRANSPLANT
     Dosage: 5 MG, UNK
     Route: 048
     Dates: start: 2008
  5. TACROLIMUS [Suspect]
     Indication: RENAL TRANSPLANT
     Dosage: 2 MG, BID
     Route: 048
     Dates: start: 2008
  6. ALFACALCIDOL [Concomitant]
     Indication: RENAL OSTEODYSTROPHY
     Dosage: 0.5 UG, UNK
     Route: 048
     Dates: start: 2008
  7. ASCAL                              /00002702/ [Concomitant]
     Indication: TRANSIENT ISCHAEMIC ATTACK
     Dosage: 100 MG, UNK
     Route: 048
     Dates: start: 2008
  8. BASILIXIMAB [Concomitant]
     Indication: RENAL TRANSPLANT

REACTIONS (2)
  - Meningococcal sepsis [Recovered/Resolved]
  - Vaccination failure [Not Recovered/Not Resolved]
